FAERS Safety Report 4667609-1 (Version None)
Quarter: 2005Q2

REPORT INFORMATION
  Report Type: 
  Country: None (occurrence: None)
  Receive Date: 20050502
  Receipt Date: 20040802
  Transmission Date: 20051028
  Serious: Yes (Hospitalization)
  Sender: FDA-Public Use
  Company Number: PHEH2004US07640

PATIENT
  Age: 64 Year
  Sex: Female

DRUGS (6)
  1. LOTREL [Suspect]
     Indication: HYPERTENSION
     Dosage: 5 MG AMLOD/10 MG BENAZ QD
     Dates: start: 20030101
  2. NEXIUM [Suspect]
  3. PAXIL [Concomitant]
  4. ACTONEL [Concomitant]
  5. APRESOLINE [Concomitant]
  6. SORIATANE [Concomitant]

REACTIONS (1)
  - PANCREATITIS [None]
